FAERS Safety Report 18044037 (Version 1)
Quarter: 2020Q3

REPORT INFORMATION
  Report Type: Spontaneous
  Country: US (occurrence: US)
  Receive Date: 20200718
  Receipt Date: 20200718
  Transmission Date: 20201103
  Serious: Yes (Hospitalization)
  Sender: FDA-Public Use
  Company Number: None

PATIENT
  Age: 77 Year
  Sex: Female
  Weight: 47.2 kg

DRUGS (6)
  1. VINCRISTINE SULFATE. [Suspect]
     Active Substance: VINCRISTINE SULFATE
     Dates: end: 20200628
  2. DOXORUBICIN HYDROCHLORIDE. [Suspect]
     Active Substance: DOXORUBICIN HYDROCHLORIDE
     Dates: end: 20200628
  3. CYCLOPHOSPHAMIDE. [Suspect]
     Active Substance: CYCLOPHOSPHAMIDE
     Dates: end: 20200627
  4. ETOPOSIDE (VP?16) [Suspect]
     Active Substance: ETOPOSIDE
     Dates: end: 20200628
  5. PREDNISONE. [Suspect]
     Active Substance: PREDNISONE
     Dates: end: 20200627
  6. RITUXIMAB/HYALURONIDASE (HUMAN RECOMBINANT) [Concomitant]
     Active Substance: HYALURONIDASE (HUMAN RECOMBINANT)\RITUXIMAB
     Dates: end: 20200623

REACTIONS (7)
  - Abdominal pain upper [None]
  - Pulmonary embolism [None]
  - Hypophagia [None]
  - Neutropenia [None]
  - Nausea [None]
  - White blood cell count decreased [None]
  - Haemoglobin decreased [None]

NARRATIVE: CASE EVENT DATE: 20200704
